FAERS Safety Report 6871066-4 (Version None)
Quarter: 2010Q3

REPORT INFORMATION
  Report Type: 
  Country: None (occurrence: None)
  Receive Date: 20100721
  Receipt Date: 20100708
  Transmission Date: 20110219
  Serious: Yes (Hospitalization, Other)
  Sender: FDA-Public Use
  Company Number: JP-SOLVAY-00309007449

PATIENT
  Age: 38 Year
  Sex: Male

DRUGS (18)
  1. FLUVOXAMINE MALEATE [Suspect]
     Indication: DEPRESSION
     Dosage: 150 MILLIGRAM(S)
     Route: 048
     Dates: start: 20080319, end: 20090725
  2. MAJORPIN (ZOTEPINE) [Suspect]
     Indication: DELUSION
     Dosage: 180 MILLIGRAM(S), 90 MILLIGRAM(S)
     Route: 048
     Dates: start: 20080109, end: 20080325
  3. MAJORPIN (ZOTEPINE) [Suspect]
     Indication: HALLUCINATION
     Dosage: 180 MILLIGRAM(S), 90 MILLIGRAM(S)
     Route: 048
     Dates: start: 20080109, end: 20080325
  4. MAJORPIN (ZOTEPINE) [Suspect]
     Indication: DELUSION
     Dosage: 180 MILLIGRAM(S), 90 MILLIGRAM(S)
     Route: 048
     Dates: start: 20080326, end: 20080329
  5. MAJORPIN (ZOTEPINE) [Suspect]
     Indication: HALLUCINATION
     Dosage: 180 MILLIGRAM(S), 90 MILLIGRAM(S)
     Route: 048
     Dates: start: 20080326, end: 20080329
  6. HALOPERIDOL [Suspect]
     Indication: DELUSION
     Dosage: 18 MILLIGRAM(S), 54 MILLIGRAM(S), 36 MILLIGRAM(S)
     Route: 048
     Dates: start: 20040609, end: 20080108
  7. HALOPERIDOL [Suspect]
     Indication: HALLUCINATION
     Dosage: 18 MILLIGRAM(S), 54 MILLIGRAM(S), 36 MILLIGRAM(S)
     Route: 048
     Dates: start: 20040609, end: 20080108
  8. HALOPERIDOL [Suspect]
     Indication: DELUSION
     Dosage: 18 MILLIGRAM(S), 54 MILLIGRAM(S), 36 MILLIGRAM(S)
     Route: 048
     Dates: start: 20080109, end: 20080320
  9. HALOPERIDOL [Suspect]
     Indication: HALLUCINATION
     Dosage: 18 MILLIGRAM(S), 54 MILLIGRAM(S), 36 MILLIGRAM(S)
     Route: 048
     Dates: start: 20080109, end: 20080320
  10. HALOPERIDOL [Suspect]
     Indication: DELUSION
     Dosage: 18 MILLIGRAM(S), 54 MILLIGRAM(S), 36 MILLIGRAM(S)
     Route: 048
     Dates: start: 20080321, end: 20090327
  11. HALOPERIDOL [Suspect]
     Indication: HALLUCINATION
     Dosage: 18 MILLIGRAM(S), 54 MILLIGRAM(S), 36 MILLIGRAM(S)
     Route: 048
     Dates: start: 20080321, end: 20090327
  12. LEVOTOMIN (LEVOMEPROMAZINE MALEATE) [Suspect]
     Indication: DELUSION
     Dosage: 300 MILLIGRAM(S)
     Route: 048
     Dates: start: 20080109
  13. LEVOTOMIN (LEVOMEPROMAZINE MALEATE) [Suspect]
     Indication: HALLUCINATION
     Dosage: 300 MILLIGRAM(S)
     Route: 048
     Dates: start: 20080109
  14. BACLOFEN [Suspect]
     Indication: DELUSION
     Dosage: 9 MILLIGRAM(S)
     Route: 048
     Dates: start: 20080109, end: 20090703
  15. BACLOFEN [Suspect]
     Indication: HALLUCINATION
     Dosage: 9 MILLIGRAM(S)
     Route: 048
     Dates: start: 20080109, end: 20090703
  16. BIPERIDEN HYDROCHLORIDE TAB [Concomitant]
  17. PROMETHAZINE HCL [Concomitant]
  18. GOODMIN (BROTIZOLAM) [Concomitant]

REACTIONS (3)
  - ANTIPSYCHOTIC DRUG LEVEL INCREASED [None]
  - CONVULSION [None]
  - DRUG INTERACTION [None]
